FAERS Safety Report 8947148 (Version 4)
Quarter: 2013Q1

REPORT INFORMATION
  Report Type: Spontaneous
  Country: US (occurrence: US)
  Receive Date: 20121205
  Receipt Date: 20130311
  Transmission Date: 20140127
  Serious: Yes (Other)
  Sender: FDA-Public Use
  Company Number: US-PFIZER INC-2012303846

PATIENT
  Sex: Female

DRUGS (1)
  1. LYRICA [Suspect]
     Dosage: UNK
     Dates: start: 20120901, end: 20121127

REACTIONS (9)
  - Bedridden [Unknown]
  - Malaise [Unknown]
  - Dizziness [Unknown]
  - Abdominal discomfort [Unknown]
  - Withdrawal syndrome [Unknown]
  - Presyncope [Unknown]
  - Asthenia [Unknown]
  - Cold sweat [Unknown]
  - Feeling abnormal [Unknown]
